FAERS Safety Report 9596234 (Version 3)
Quarter: 2013Q4

REPORT INFORMATION
  Report Type: Report from Study
  Country: JP (occurrence: JP)
  Receive Date: 20131004
  Receipt Date: 20131202
  Transmission Date: 20140711
  Serious: No
  Sender: FDA-Public Use
  Company Number: JP-SA-2013SA097441

PATIENT
  Age: 13 Year
  Sex: Male

DRUGS (1)
  1. EVOLTRA [Suspect]
     Indication: ACUTE LYMPHOCYTIC LEUKAEMIA RECURRENT
     Dosage: 20 MG/BODY/DAY
     Route: 042
     Dates: start: 20130729, end: 20130802

REACTIONS (1)
  - Therapeutic response decreased [Unknown]
